FAERS Safety Report 14146105 (Version 1)
Quarter: 2017Q4

REPORT INFORMATION
  Report Type: Spontaneous
  Country: CH (occurrence: CH)
  Receive Date: 20171031
  Receipt Date: 20171031
  Transmission Date: 20180321
  Serious: Yes (Other)
  Sender: FDA-Public Use
  Company Number: CH-GILEAD-2017-0291046

PATIENT
  Age: 52 Year
  Sex: Male
  Weight: 70 kg

DRUGS (12)
  1. RIFAXIMINE [Concomitant]
  2. IMPORTAL [Concomitant]
     Active Substance: LACTITOL
     Indication: ENCEPHALOPATHY
  3. MAGNESIUM [Concomitant]
     Active Substance: MAGNESIUM
  4. DACLATASVIR. [Suspect]
     Active Substance: DACLATASVIR
     Indication: CHRONIC HEPATITIS C
     Dosage: UNK
     Route: 065
     Dates: start: 201408
  5. NORVIR [Concomitant]
     Active Substance: RITONAVIR
     Indication: HIV INFECTION
  6. ANXIOLIT [Concomitant]
     Active Substance: OXAZEPAM
     Indication: ANXIETY
  7. NORSOL                             /00016202/ [Concomitant]
     Indication: PROPHYLAXIS
  8. TRUVADA [Concomitant]
     Active Substance: EMTRICITABINE\TENOFOVIR DISOPROXIL FUMARATE
     Indication: HIV INFECTION
  9. REMERON [Concomitant]
     Active Substance: MIRTAZAPINE
     Indication: INSOMNIA
  10. XIFAXAN [Concomitant]
     Active Substance: RIFAXIMIN
     Indication: ENCEPHALOPATHY
  11. SOVALDI [Suspect]
     Active Substance: SOFOSBUVIR
     Indication: CHRONIC HEPATITIS C
     Dosage: UNK
     Route: 065
     Dates: start: 201408
  12. REYATAZ [Concomitant]
     Active Substance: ATAZANAVIR SULFATE
     Indication: HIV INFECTION

REACTIONS (5)
  - Hepatitis C [Not Recovered/Not Resolved]
  - Portal hypertension [Unknown]
  - Genotype drug resistance test positive [Unknown]
  - Drug ineffective [Not Recovered/Not Resolved]
  - Hepatopulmonary syndrome [Unknown]

NARRATIVE: CASE EVENT DATE: 201502
